FAERS Safety Report 6034284-3 (Version None)
Quarter: 2009Q1

REPORT INFORMATION
  Report Type: 
  Country: None (occurrence: None)
  Receive Date: 20090108
  Receipt Date: 20081223
  Transmission Date: 20090719
  Serious: Yes (Death)
  Sender: FDA-Public Use
  Company Number: 000089

PATIENT
  Age: 49 Year
  Sex: Female

DRUGS (7)
  1. ALPRAZOLAM [Suspect]
  2. MORPHINE [Suspect]
  3. BENZODIAZEPINE DERIVATIVES [Suspect]
  4. TEMAZEPAM [Suspect]
  5. ETHANOL [Suspect]
  6. ACETAMINOPHEN [Suspect]
  7. DIAZEPAM [Suspect]

REACTIONS (3)
  - ALCOHOL USE [None]
  - COMPLETED SUICIDE [None]
  - INTENTIONAL DRUG MISUSE [None]
